FAERS Safety Report 6920377-2 (Version None)
Quarter: 2010Q3

REPORT INFORMATION
  Report Type: 
  Country: None (occurrence: None)
  Receive Date: 20100804
  Receipt Date: 20100120
  Transmission Date: 20110219
  Serious: No
  Sender: FDA-Public Use
  Company Number: 2010-0252

PATIENT
  Age: 68 Year
  Sex: Female
  Weight: 81.1 kg

DRUGS (17)
  1. SOMATULINE DEPOT [Suspect]
     Indication: PRODUCT USED FOR UNKNOWN INDICATION
     Dosage: 60 MG (60 MG, NOT REPORTED), SUBCUTANEOUS
     Route: 058
     Dates: start: 20100106, end: 20100120
  2. SANDOSTATIN LAR [Concomitant]
  3. SINGULAIR (MONTEULKAST) [Concomitant]
  4. ALLEGRA [Concomitant]
  5. CHLORHEXIDINE GLUCONATE [Concomitant]
  6. CYMBALTA [Concomitant]
  7. FOLIC ACID [Concomitant]
  8. GAS RELIEF (DIMETICONE, ACTIVATED) [Concomitant]
  9. METFORMIN HCL (METFORMIN HYDROCHLORIDE) [Concomitant]
  10. POTASSIUM CHLORIDE [Concomitant]
  11. METHOTREXATE [Concomitant]
  12. PREMARIN [Concomitant]
  13. PROPXYPHENE NAPSYLATE-APAP (PROPACET) [Concomitant]
  14. TRAZODONE HCL [Concomitant]
  15. TRIAMTERENE-HCTZ (DYAZIDE) [Concomitant]
  16. VITAMIN D [Concomitant]
  17. ZINC (ZINC) [Concomitant]

REACTIONS (4)
  - DIARRHOEA [None]
  - INJECTION SITE NODULE [None]
  - RASH [None]
  - URTICARIA [None]
